FAERS Safety Report 10495385 (Version 2)
Quarter: 2014Q4

REPORT INFORMATION
  Report Type: Spontaneous
  Country: US (occurrence: None)
  Receive Date: 20141001
  Receipt Date: 20141211
  Transmission Date: 20150528
  Serious: Yes (Other)
  Sender: FDA-Public Use
  Company Number: CIO14064807

PATIENT
  Age: 39 Year
  Sex: Female
  Weight: 68 kg

DRUGS (4)
  1. CREST 3D WHITE [Suspect]
     Active Substance: SODIUM FLUORIDE
     Indication: TOOTH DISCOLOURATION
     Dosage: 1 APPLICATION, 2-3/DAY, ABOUT 1 TEASPOON, INTRAORAL
     Dates: start: 201306, end: 201406
  2. ADVIL /00109201/ (IBUPROFEN) [Concomitant]
  3. CREST 3D WHITE [Suspect]
     Active Substance: SODIUM FLUORIDE
     Indication: DENTAL CARIES
     Dosage: 1 APPLICATION, 2-3/DAY, ABOUT 1 TEASPOON, INTRAORAL
     Dates: start: 201306, end: 201406
  4. CREST 3D WHITE LUXE GLAMOROUS WHITE MULTI-CARE [Suspect]
     Active Substance: HYDROGEN PEROXIDE

REACTIONS (8)
  - Bone graft [None]
  - Loose tooth [None]
  - Breath odour [None]
  - Foreign body [None]
  - Periodontal disease [None]
  - Tooth disorder [None]
  - Gingival bleeding [None]
  - Periodontitis [None]

NARRATIVE: CASE EVENT DATE: 201401
